FAERS Safety Report 9421367 (Version 1)
Quarter: 2013Q3

REPORT INFORMATION
  Report Type: Report from Study
  Country: US (occurrence: US)
  Receive Date: 20130725
  Receipt Date: 20130725
  Transmission Date: 20140515
  Serious: Yes (Hospitalization)
  Sender: FDA-Public Use
  Company Number: US-US-EMD SERONO, INC.-7225062

PATIENT
  Age: 50 Year
  Sex: Female

DRUGS (2)
  1. REBIF [Suspect]
     Indication: PRODUCT USED FOR UNKNOWN INDICATION
     Route: 058
     Dates: start: 20120416
  2. PERCOCET                           /00446701/ [Concomitant]
     Indication: PAIN

REACTIONS (9)
  - Ankle fracture [Unknown]
  - Fall [Unknown]
  - Ligament sprain [Unknown]
  - Nausea [Unknown]
  - Dizziness [Unknown]
  - Constipation [Recovered/Resolved]
  - Diarrhoea [Unknown]
  - Skin mass [Recovering/Resolving]
  - Pruritus [Recovering/Resolving]
